FAERS Safety Report 7527643-0 (Version None)
Quarter: 2011Q2

REPORT INFORMATION
  Report Type: 
  Country: None (occurrence: None)
  Receive Date: 20110527
  Receipt Date: 20110426
  Transmission Date: 20111010
  Serious: Yes (Hospitalization)
  Sender: FDA-Public Use
  Company Number: LEO-2011-00457

PATIENT
  Age: 26 Year
  Sex: Female
  Weight: 56 kg

DRUGS (5)
  1. PREVISCAN (FLUINDIONE) [Concomitant]
  2. TIMOFEROL (ASCORBIC ACID, FERROUS SULFATE) [Concomitant]
  3. INNOHEP [Suspect]
     Indication: PRODUCT USED FOR UNKNOWN INDICATION
     Dosage: 12000 IU (12000 IU,1 IN 1 D), SUBCUTANENOUS
     Route: 058
     Dates: start: 20100617
  4. HYDREA [Concomitant]
  5. URSODIOL [Concomitant]

REACTIONS (7)
  - CHOLESTASIS [None]
  - DRUG EXPOSURE DURING PREGNANCY [None]
  - PRURITUS [None]
  - BUDD-CHIARI SYNDROME [None]
  - ANAEMIA [None]
  - FATIGUE [None]
  - MALAISE [None]
